FAERS Safety Report 17392823 (Version 1)
Quarter: 2020Q1

REPORT INFORMATION
  Report Type: Report from Study
  Country: None (occurrence: US)
  Receive Date: 20200207
  Receipt Date: 20200207
  Transmission Date: 20200409
  Serious: Yes (Hospitalization)
  Sender: FDA-Public Use
  Company Number: US-ABBVIE-20K-163-3264504-00

PATIENT
  Sex: Male

DRUGS (1)
  1. HUMIRA [Suspect]
     Active Substance: ADALIMUMAB
     Indication: PRODUCT USED FOR UNKNOWN INDICATION
     Route: 058

REACTIONS (9)
  - Peripheral swelling [Unknown]
  - Surgery [Unknown]
  - Muscle atrophy [Unknown]
  - Inflammation [Unknown]
  - Joint lock [Unknown]
  - Blood glucose increased [Unknown]
  - Spinal fracture [Unknown]
  - Arthritis [Unknown]
  - Grip strength decreased [Unknown]
